FAERS Safety Report 21091995 (Version 2)
Quarter: 2022Q3

REPORT INFORMATION
  Report Type: Spontaneous
  Country: US (occurrence: None)
  Receive Date: 20220718
  Receipt Date: 20220810
  Transmission Date: 20221027
  Serious: No
  Sender: FDA-Public Use
  Company Number: 2022A238632

PATIENT
  Sex: Female
  Weight: 59 kg

DRUGS (4)
  1. FASENRA [Suspect]
     Active Substance: BENRALIZUMAB
     Indication: Asthma
     Route: 058
     Dates: start: 2017
  2. BUDESONIDE [Suspect]
     Active Substance: BUDESONIDE
     Indication: Cough
     Dosage: 0.5 /2 ML VIA NEBULIZER RESPIRATORY INHALATION, DAILY
     Route: 055
  3. BUDESONIDE [Suspect]
     Active Substance: BUDESONIDE
     Indication: Asthma
     Dosage: 0.5 /2 ML VIA NEBULIZER RESPIRATORY INHALATION, DAILY
     Route: 055
  4. PREDNISONE [Concomitant]
     Active Substance: PREDNISONE
     Route: 048

REACTIONS (7)
  - Asthma [Unknown]
  - Abdominal pain upper [Not Recovered/Not Resolved]
  - Oral candidiasis [Not Recovered/Not Resolved]
  - Blood immunoglobulin G increased [Unknown]
  - Body height decreased [Unknown]
  - Irritability [Not Recovered/Not Resolved]
  - Diarrhoea [Not Recovered/Not Resolved]
